FAERS Safety Report 18791709 (Version 1)
Quarter: 2021Q1

REPORT INFORMATION
  Report Type: Spontaneous
  Country: US (occurrence: US)
  Receive Date: 20210126
  Receipt Date: 20210126
  Transmission Date: 20210419
  Serious: No
  Sender: FDA-Public Use
  Company Number: US-PERRIGO-20US011887

PATIENT
  Age: 46 Year
  Sex: Female
  Weight: 68.03 kg

DRUGS (4)
  1. IBUPROFEN AND DIPHENHYDRAMINE CITRATE [Suspect]
     Active Substance: DIPHENHYDRAMINE CITRATE\IBUPROFEN
     Indication: PAIN
     Dosage: 2 TABLETS, SINGLE
     Route: 048
     Dates: start: 20200814, end: 20200814
  2. IBUPROFEN AND DIPHENHYDRAMINE CITRATE [Suspect]
     Active Substance: DIPHENHYDRAMINE CITRATE\IBUPROFEN
     Indication: INSOMNIA
     Dosage: 3 TABLETS, SINGLE
     Route: 048
     Dates: start: 20200815, end: 20200815
  3. MVI                                /07504101/ [Concomitant]
     Indication: SUPPLEMENTATION THERAPY
     Dosage: UNK
     Route: 065
  4. SYNTHROID [Concomitant]
     Active Substance: LEVOTHYROXINE SODIUM
     Indication: HYPOTHYROIDISM
     Dosage: UNK
     Route: 065
     Dates: start: 2006

REACTIONS (6)
  - Oral mucosal blistering [Recovering/Resolving]
  - Mouth swelling [Recovering/Resolving]
  - Lip swelling [Recovering/Resolving]
  - Incorrect dose administered [Recovered/Resolved]
  - Throat irritation [Recovering/Resolving]
  - Oral pain [Recovering/Resolving]

NARRATIVE: CASE EVENT DATE: 20200815
